FAERS Safety Report 10978970 (Version 1)
Quarter: 2015Q2

REPORT INFORMATION
  Report Type: Spontaneous
  Country: US (occurrence: None)
  Receive Date: 20150401
  Receipt Date: 20150401
  Transmission Date: 20150821
  Serious: Yes (Life-Threatening)
  Sender: FDA-Public Use
  Company Number: None

PATIENT
  Age: 78 Year
  Sex: Female
  Weight: 64.3 kg

DRUGS (6)
  1. COLACE [Concomitant]
     Active Substance: DOCUSATE SODIUM
  2. APIXABAN [Concomitant]
     Active Substance: APIXABAN
  3. PROPAFENONE. [Concomitant]
     Active Substance: PROPAFENONE
  4. AMLODIPINE [Concomitant]
     Active Substance: AMLODIPINE BESYLATE
  5. BENZOCAINE. [Suspect]
     Active Substance: BENZOCAINE
     Indication: PREOPERATIVE CARE
     Dosage: 2 SPRAYS, ORAL SPRAY
     Dates: start: 20141120, end: 20141120
  6. METOPROLOL [Concomitant]
     Active Substance: METOPROLOL

REACTIONS (4)
  - Oxygen saturation decreased [None]
  - Cyanosis [None]
  - Methaemoglobinaemia [None]
  - Drug hypersensitivity [None]

NARRATIVE: CASE EVENT DATE: 20141120
